FAERS Safety Report 23184870 (Version 1)
Quarter: 2023Q4

REPORT INFORMATION
  Report Type: Spontaneous
  Country: GB (occurrence: GB)
  Receive Date: 20231115
  Receipt Date: 20231115
  Transmission Date: 20240109
  Serious: Yes (Other)
  Sender: FDA-Public Use
  Company Number: None

PATIENT
  Age: 72 Year
  Sex: Female
  Weight: 84 kg

DRUGS (5)
  1. LEVETIRACETAM [Suspect]
     Active Substance: LEVETIRACETAM
     Indication: Partial seizures
     Dosage: UNK UNK, 2X/12 HOURS (250 X2 DAILY)
     Dates: start: 20231001
  2. FAMOTIDINE [Concomitant]
     Active Substance: FAMOTIDINE
     Indication: Product used for unknown indication
     Dosage: UNK
  3. CALCIUM CARBONATE\CALCIUM PHOSPHATE\KAOLIN\MAG CARBONATE\MAG HYDROXIDE [Concomitant]
     Active Substance: CALCIUM CARBONATE\CALCIUM PHOSPHATE\KAOLIN\MAG CARBONATE\MAG HYDROXIDE\MAG OXIDE
     Indication: Product used for unknown indication
     Dosage: UNK
  4. TUMS [Concomitant]
     Active Substance: CALCIUM CARBONATE
     Indication: Product used for unknown indication
     Dosage: UNK
  5. GAVICON [ALUMINIUM HYDROXIDE GEL, DRIED;MAGNESIUM CARBONATE;SODIUM ALG [Concomitant]
     Indication: Product used for unknown indication
     Dosage: UNK

REACTIONS (1)
  - Gastrooesophageal reflux disease [Not Recovered/Not Resolved]

NARRATIVE: CASE EVENT DATE: 20231010
